FAERS Safety Report 16992924 (Version 2)
Quarter: 2019Q4

REPORT INFORMATION
  Report Type: Spontaneous
  Country: JP (occurrence: JP)
  Receive Date: 20191105
  Receipt Date: 20191204
  Transmission Date: 20200122
  Serious: Yes (Hospitalization, Other)
  Sender: FDA-Public Use
  Company Number: JP-SA-2019SA301139

PATIENT
  Age: 87 Year
  Sex: Male

DRUGS (5)
  1. NICORANDIL [Concomitant]
     Active Substance: NICORANDIL
     Indication: PRODUCT USED FOR UNKNOWN INDICATION
     Route: 048
  2. CLOPIDOGREL BISULFATE. [Suspect]
     Active Substance: CLOPIDOGREL BISULFATE
     Indication: PRODUCT USED FOR UNKNOWN INDICATION
     Route: 048
  3. CILNIDIPINE;VALSARTAN [Concomitant]
     Indication: PRODUCT USED FOR UNKNOWN INDICATION
     Route: 048
  4. LANSOPRAZOLE. [Concomitant]
     Active Substance: LANSOPRAZOLE
     Indication: PRODUCT USED FOR UNKNOWN INDICATION
     Route: 048
  5. PITAVASTATIN CA [Concomitant]
     Active Substance: PITAVASTATIN CALCIUM
     Indication: PRODUCT USED FOR UNKNOWN INDICATION
     Route: 048

REACTIONS (10)
  - Oedema peripheral [Recovered/Resolved]
  - Small cell lung cancer limited stage [Unknown]
  - Lung opacity [Unknown]
  - Superior vena cava syndrome [Unknown]
  - Lymphadenopathy [Unknown]
  - Rales [Unknown]
  - Vasodilatation [Recovered/Resolved]
  - Face oedema [Recovered/Resolved]
  - Chest X-ray abnormal [Unknown]
  - Lymphadenopathy mediastinal [Unknown]
